FAERS Safety Report 6863130-0 (Version None)
Quarter: 2010Q3

REPORT INFORMATION
  Report Type: 
  Country: None (occurrence: None)
  Receive Date: 20100721
  Receipt Date: 20100715
  Transmission Date: 20110219
  Serious: Yes (Hospitalization)
  Sender: FDA-Public Use
  Company Number: US-GILEAD-2010-0029984

PATIENT
  Sex: Female
  Weight: 84.1 kg

DRUGS (7)
  1. LETAIRIS [Suspect]
     Indication: PULMONARY ARTERIAL HYPERTENSION
     Route: 048
     Dates: start: 20071016
  2. HECTOROL [Concomitant]
  3. SPIRIVA [Concomitant]
  4. PLAVIX [Concomitant]
  5. SYNTHROID [Concomitant]
  6. SERTRALINE HCL [Concomitant]
  7. ASPIRIN [Concomitant]

REACTIONS (1)
  - PERICARDIAL EFFUSION [None]
